FAERS Safety Report 4730492-X (Version None)
Quarter: 2005Q3

REPORT INFORMATION
  Report Type: 
  Country: None (occurrence: None)
  Receive Date: 20050801
  Receipt Date: 20030806
  Transmission Date: 20060218
  Serious: Yes (Life-Threatening, Hospitalization)
  Sender: FDA-Public Use
  Company Number: PHHO2003AU10174

PATIENT
  Age: 56 Year
  Sex: Male
  Weight: 82 kg

DRUGS (12)
  1. CYCLOSPORINE [Suspect]
     Dosage: 250 MG, UNK
     Route: 042
     Dates: start: 20030708, end: 20030722
  2. VANCOMYCIN [Suspect]
     Indication: PYREXIA
     Dosage: 1 G, BID
     Route: 042
     Dates: start: 20030719, end: 20030721
  3. CEFEPIME [Concomitant]
     Indication: PYREXIA
     Dosage: UNK, UNK
     Dates: start: 20030714, end: 20030722
  4. NYSTATIN [Concomitant]
     Indication: PROPHYLAXIS
     Dates: start: 20030705
  5. VALACYCLOVIR HCL [Concomitant]
     Indication: PROPHYLAXIS
     Dates: start: 20030705, end: 20030721
  6. CIPROFLOXACIN [Concomitant]
     Indication: PYREXIA
     Dates: start: 20030718, end: 20030722
  7. DOMPERIDONE [Concomitant]
     Indication: NAUSEA
     Dates: start: 20030719, end: 20030722
  8. MAGNESIUM SULFATE [Concomitant]
     Indication: HYPOMAGNESAEMIA
     Dates: start: 20030711
  9. LASIX [Concomitant]
     Indication: FLUID IMBALANCE
     Dates: start: 20030706
  10. FLUCONAZOLE [Concomitant]
     Indication: PROPHYLAXIS
     Dates: start: 20030705
  11. URSODEOXYCHOLIC ACID [Concomitant]
     Indication: PROPHYLAXIS
     Dates: start: 20030705
  12. GLEEVEC [Suspect]
     Indication: CHRONIC MYELOID LEUKAEMIA
     Dosage: 400 MG, BID
     Route: 048
     Dates: start: 20030326, end: 20030722

REACTIONS (5)
  - BLAST CRISIS IN MYELOGENOUS LEUKAEMIA [None]
  - ENGRAFTMENT SYNDROME [None]
  - PYREXIA [None]
  - RASH [None]
  - RENAL FAILURE ACUTE [None]
